FAERS Safety Report 4901720-2 (Version None)
Quarter: 2006Q1

REPORT INFORMATION
  Report Type: 
  Country: None (occurrence: None)
  Receive Date: 20060206
  Receipt Date: 20060125
  Transmission Date: 20060701
  Serious: Yes (Other)
  Sender: FDA-Public Use
  Company Number: BE-AVENTIS-200610811GDDC

PATIENT
  Age: 54 Year
  Sex: Male
  Weight: 60 kg

DRUGS (3)
  1. KETEK [Suspect]
     Indication: SINUSITIS
  2. KETEK [Suspect]
     Route: 048
     Dates: start: 20051214, end: 20051215
  3. CIRRUS [Concomitant]
     Dosage: DOSE: UNK

REACTIONS (5)
  - BLOOD CREATINE PHOSPHOKINASE INCREASED [None]
  - C-REACTIVE PROTEIN INCREASED [None]
  - LEUKOCYTOSIS [None]
  - PARESIS [None]
  - RED BLOOD CELL SEDIMENTATION RATE INCREASED [None]
